FAERS Safety Report 8854843 (Version 1)
Quarter: 2012Q4

REPORT INFORMATION
  Report Type: 
  Country: US (occurrence: US)
  Receive Date: 20121023
  Receipt Date: 20121023
  Transmission Date: 20130627
  Serious: Yes (Other)
  Sender: FDA-Public Use
  Company Number: PHEH2012US020431

PATIENT
  Sex: Female

DRUGS (2)
  1. DIOVAN HCT [Suspect]
     Dosage: UNK UKN, UNK
  2. BYSTOLIC [Concomitant]
     Dosage: UNK UKN, UNK

REACTIONS (1)
  - Oropharyngeal neoplasm [Unknown]
